FAERS Safety Report 16650620 (Version 2)
Quarter: 2019Q3

REPORT INFORMATION
  Report Type: Spontaneous
  Country: JP (occurrence: JP)
  Receive Date: 20190731
  Receipt Date: 20190801
  Transmission Date: 20191004
  Serious: Yes (Death, Hospitalization, Other)
  Sender: FDA-Public Use
  Company Number: PHJP2019JP009932

PATIENT
  Age: 80 Year
  Sex: Male

DRUGS (2)
  1. TAFINLAR [Suspect]
     Active Substance: DABRAFENIB MESYLATE
     Indication: NON-SMALL CELL LUNG CANCER RECURRENT
     Dosage: UNK
     Route: 048
     Dates: start: 20180801, end: 20181218
  2. MEKINIST [Suspect]
     Active Substance: TRAMETINIB DIMETHYL SULFOXIDE
     Indication: NON-SMALL CELL LUNG CANCER RECURRENT
     Dosage: UNK
     Route: 048
     Dates: start: 20180801, end: 20181218

REACTIONS (22)
  - Malignant neoplasm progression [Fatal]
  - Asthma [Unknown]
  - Nasopharyngitis [Unknown]
  - Rash [Unknown]
  - Vomiting [Unknown]
  - Pruritus [Unknown]
  - Lymphadenopathy [Fatal]
  - Pyrexia [Unknown]
  - Disseminated intravascular coagulation [Unknown]
  - Gait disturbance [Unknown]
  - General physical health deterioration [Unknown]
  - Generalised oedema [Unknown]
  - Pyrexia [Recovered/Resolved]
  - Staphylococcal sepsis [Unknown]
  - Gastrooesophageal reflux disease [Unknown]
  - Feeding disorder [Unknown]
  - Cough [Recovered/Resolved]
  - Non-small cell lung cancer recurrent [Fatal]
  - Pneumonia moraxella [Unknown]
  - Oral candidiasis [Unknown]
  - Decreased appetite [Unknown]
  - Stomatitis [Unknown]

NARRATIVE: CASE EVENT DATE: 20180820
